FAERS Safety Report 5181133-1 (Version None)
Quarter: 2006Q4

REPORT INFORMATION
  Report Type: 
  Country: None (occurrence: None)
  Receive Date: 20061215
  Receipt Date: 20061215
  Transmission Date: 20070319
  Serious: Yes (Other)
  Sender: FDA-Public Use
  Company Number: None

PATIENT
  Age: 65 Year
  Sex: Male
  Weight: 86.1834 kg

DRUGS (2)
  1. LEVAQUIN [Suspect]
     Indication: BIOPSY PROSTATE
     Dosage: 500 MG DAILY PO
     Route: 048
     Dates: start: 20060711, end: 20060716
  2. LEVAQUIN [Suspect]
     Indication: PROPHYLAXIS
     Dosage: 500 MG DAILY PO
     Route: 048
     Dates: start: 20060711, end: 20060716

REACTIONS (4)
  - BALANCE DISORDER [None]
  - GAIT DISTURBANCE [None]
  - JOINT SWELLING [None]
  - TENDON PAIN [None]
